FAERS Safety Report 5422088-1 (Version None)
Quarter: 2007Q3

REPORT INFORMATION
  Report Type: 
  Country: None (occurrence: None)
  Receive Date: 20070821
  Receipt Date: 20070821
  Transmission Date: 20080115
  Serious: No
  Sender: FDA-Public Use
  Company Number: None

PATIENT
  Age: 71 Year
  Sex: Female
  Weight: 72.5755 kg

DRUGS (1)
  1. WARFARIN SODIUM [Suspect]
     Indication: PULMONARY EMBOLISM
     Dosage: 7 MG MON/TUES-10 REST OF WEEK DAILY PO
     Route: 048
     Dates: start: 20020909, end: 20070818

REACTIONS (1)
  - MUSCLE SPASMS [None]
